FAERS Safety Report 18292522 (Version 1)
Quarter: 2020Q3

REPORT INFORMATION
  Report Type: Spontaneous
  Country: ES (occurrence: ES)
  Receive Date: 20200922
  Receipt Date: 20200922
  Transmission Date: 20201103
  Serious: Yes (Hospitalization, Other)
  Sender: FDA-Public Use
  Company Number: ES-AUROBINDO-AUR-APL-2020-048456

PATIENT
  Age: 87 Year
  Sex: Male

DRUGS (2)
  1. IBUPROFEN. [Suspect]
     Active Substance: IBUPROFEN
     Indication: BACK PAIN
     Dosage: CADA 12 HORAS
     Route: 048
     Dates: start: 202008, end: 20200826
  2. LIXIANA [Interacting]
     Active Substance: EDOXABAN TOSYLATE
     Indication: ATRIAL FIBRILLATION
     Dosage: 30 MILLIGRAM, ONCE A DAY
     Route: 048
     Dates: start: 20191106

REACTIONS (1)
  - Duodenal ulcer haemorrhage [Recovered/Resolved]

NARRATIVE: CASE EVENT DATE: 20200821
